FAERS Safety Report 8615952-3 (Version None)
Quarter: 2012Q3

REPORT INFORMATION
  Report Type: 
  Country: None (occurrence: None)
  Receive Date: 20120823
  Receipt Date: 20120816
  Transmission Date: 20120928
  Serious: Yes (Hospitalization, Other)
  Sender: FDA-Public Use
  Company Number: GB-ABBOTT-12P-167-0970520-00

PATIENT
  Age: 48 Year
  Sex: Female

DRUGS (5)
  1. EMTRICITABINE [Concomitant]
     Indication: HIV INFECTION
  2. FORMOTEROL W/BUDESONIDE [Interacting]
     Indication: ASTHMA
     Dosage: 400 MCG/12 MCG
     Route: 055
  3. DARUNAVIR ETHANOLATE [Interacting]
     Indication: HIV INFECTION
  4. EFAVIRENZ [Concomitant]
     Indication: HIV INFECTION
  5. RITONAVIR [Suspect]
     Indication: HIV INFECTION

REACTIONS (3)
  - DRUG INTERACTION [None]
  - ADRENAL SUPPRESSION [None]
  - CUSHING'S SYNDROME [None]
